FAERS Safety Report 19415315 (Version 1)
Quarter: 2021Q2

REPORT INFORMATION
  Report Type: Spontaneous
  Country: GB (occurrence: GB)
  Receive Date: 20210614
  Receipt Date: 20210614
  Transmission Date: 20210717
  Serious: Yes (Hospitalization, Other)
  Sender: FDA-Public Use
  Company Number: GB-PERRIGO-21GB007806

PATIENT

DRUGS (1)
  1. PARACETAMOL [Suspect]
     Active Substance: ACETAMINOPHEN
     Indication: PRODUCT USED FOR UNKNOWN INDICATION
     Dosage: UNK
     Route: 065

REACTIONS (10)
  - Encephalitis [Unknown]
  - Toxicity to various agents [Unknown]
  - Cerebral ischaemia [Unknown]
  - Cerebrovascular accident [Unknown]
  - Overdose [Unknown]
  - Oxidative stress [Unknown]
  - Generalised tonic-clonic seizure [Recovered/Resolved]
  - Metabolic disorder [Unknown]
  - Status epilepticus [Recovered/Resolved]
  - Ophthalmoplegia [Unknown]
